FAERS Safety Report 10588543 (Version 1)
Quarter: 2014Q4

REPORT INFORMATION
  Report Type: Spontaneous
  Country: CH (occurrence: CH)
  Receive Date: 20141117
  Receipt Date: 20141117
  Transmission Date: 20150529
  Serious: Yes (Other)
  Sender: FDA-Public Use
  Company Number: CH-BAUSCH-BL-2014-008855

PATIENT
  Age: 85 Year
  Sex: Female

DRUGS (17)
  1. TORASEMIDE [Suspect]
     Active Substance: TORSEMIDE
     Route: 048
     Dates: start: 20140908, end: 20140910
  2. TORASEMIDE [Suspect]
     Active Substance: TORSEMIDE
     Route: 048
     Dates: start: 20140911, end: 20140911
  3. DAFALGAN [Concomitant]
     Active Substance: ACETAMINOPHEN
     Indication: PYREXIA
     Dates: start: 20140831
  4. LASIX [Suspect]
     Active Substance: FUROSEMIDE
     Route: 041
     Dates: start: 20140913, end: 20140915
  5. ARIXTRA [Concomitant]
     Active Substance: FONDAPARINUX SODIUM
     Indication: ATRIAL FIBRILLATION
     Dates: start: 20140829, end: 20140916
  6. DILZEM [Suspect]
     Active Substance: DILTIAZEM
     Indication: ATRIAL FIBRILLATION
     Route: 048
     Dates: start: 20140830, end: 20140910
  7. DILZEM [Suspect]
     Active Substance: DILTIAZEM
     Route: 048
     Dates: start: 20140911, end: 20140916
  8. TORASEMIDE [Suspect]
     Active Substance: TORSEMIDE
     Indication: CARDIAC FAILURE
     Route: 048
     Dates: start: 20140907, end: 20140908
  9. TORASEMIDE [Suspect]
     Active Substance: TORSEMIDE
     Route: 048
     Dates: start: 20140912, end: 20140918
  10. NEXIUM [Suspect]
     Active Substance: ESOMEPRAZOLE MAGNESIUM
     Indication: PRODUCT USED FOR UNKNOWN INDICATION
     Route: 048
     Dates: start: 20140830, end: 20140916
  11. AUGMENTIN [Concomitant]
     Active Substance: AMOXICILLIN\CLAVULANATE POTASSIUM
     Indication: DERMO-HYPODERMITIS
     Dates: start: 20140915, end: 20140919
  12. LASIX [Suspect]
     Active Substance: FUROSEMIDE
     Indication: CARDIAC FAILURE
     Route: 041
     Dates: start: 20140829, end: 20140906
  13. MOVICOL [Concomitant]
     Active Substance: POLYETHYLENE GLYCOL 3350\POTASSIUM CHLORIDE\SODIUM BICARBONATE\SODIUM CHLORIDE
     Indication: PRODUCT USED FOR UNKNOWN INDICATION
  14. LASIX [Suspect]
     Active Substance: FUROSEMIDE
     Route: 041
     Dates: start: 20140909, end: 20140910
  15. LASIX [Suspect]
     Active Substance: FUROSEMIDE
     Route: 041
     Dates: start: 20140918
  16. SINTROM [Suspect]
     Active Substance: ACENOCOUMAROL
     Indication: ATRIAL FIBRILLATION
     Route: 048
     Dates: start: 20140913, end: 20140919
  17. LAXOBERON [Concomitant]
     Active Substance: SODIUM PICOSULFATE
     Indication: PRODUCT USED FOR UNKNOWN INDICATION

REACTIONS (1)
  - Toxic skin eruption [Recovered/Resolved]

NARRATIVE: CASE EVENT DATE: 20140915
